FAERS Safety Report 16395183 (Version 1)
Quarter: 2019Q2

REPORT INFORMATION
  Report Type: Spontaneous
  Country: US (occurrence: US)
  Receive Date: 20190605
  Receipt Date: 20190605
  Transmission Date: 20190711
  Serious: No
  Sender: FDA-Public Use
  Company Number: US-LUNDBECK-DKLU2079656

PATIENT
  Age: 73 Year
  Sex: Female

DRUGS (3)
  1. NORTHERA [Suspect]
     Active Substance: DROXIDOPA
     Route: 048
  2. NORTHERA [Suspect]
     Active Substance: DROXIDOPA
     Indication: PARKINSON^S DISEASE
     Route: 048
     Dates: start: 20190503
  3. NORTHERA [Suspect]
     Active Substance: DROXIDOPA
     Route: 048

REACTIONS (2)
  - Fatigue [Unknown]
  - Hypotension [Unknown]

NARRATIVE: CASE EVENT DATE: 20190603
